FAERS Safety Report 17104100 (Version 1)
Quarter: 2019Q4

REPORT INFORMATION
  Report Type: Spontaneous
  Country: JP (occurrence: JP)
  Receive Date: 20191203
  Receipt Date: 20191203
  Transmission Date: 20200122
  Serious: Yes (Other)
  Sender: FDA-Public Use
  Company Number: JP-RECORDATI RARE DISEASES INC.-JP-R13005-19-00338

PATIENT
  Age: 10 Month
  Sex: Male

DRUGS (2)
  1. DACTINOMYCIN [Suspect]
     Active Substance: DACTINOMYCIN
     Indication: NEPHROBLASTOMA
     Route: 065
  2. VINCRISTINE SULPHATE [Concomitant]
     Active Substance: VINCRISTINE SULFATE
     Indication: NEPHROBLASTOMA
     Route: 065

REACTIONS (5)
  - Therapy partial responder [Unknown]
  - Tumour haemorrhage [Unknown]
  - Venoocclusive liver disease [Unknown]
  - Tachycardia [Unknown]
  - Anaemia [Unknown]
